FAERS Safety Report 9484578 (Version 2)
Quarter: 2013Q3

REPORT INFORMATION
  Report Type: Spontaneous
  Country: US (occurrence: US)
  Receive Date: 20130828
  Receipt Date: 20130904
  Transmission Date: 20140515
  Serious: Yes (Hospitalization, Other)
  Sender: FDA-Public Use
  Company Number: US-B.I. PHARMACEUTICALS,INC./RIDGEFIELD-2013-BI-26452BP

PATIENT
  Age: 60 Year
  Sex: Female
  Weight: 82 kg

DRUGS (3)
  1. PRADAXA [Suspect]
     Indication: ATRIAL FIBRILLATION
     Dates: start: 20110801, end: 20110812
  2. PRADAXA [Suspect]
     Indication: ATRIAL FLUTTER
     Dates: start: 20110916
  3. ASPIRIN [Concomitant]
     Dosage: 81 MG

REACTIONS (1)
  - Myocardial infarction [Recovered/Resolved]
